FAERS Safety Report 15005780 (Version 4)
Quarter: 2018Q3

REPORT INFORMATION
  Report Type: Spontaneous
  Country: BE (occurrence: BE)
  Receive Date: 20180613
  Receipt Date: 20180705
  Transmission Date: 20181010
  Serious: Yes (Other)
  Sender: FDA-Public Use
  Company Number: PHHY2018BE019626

PATIENT
  Age: 53 Year
  Sex: Male

DRUGS (6)
  1. TOBREX [Suspect]
     Active Substance: TOBRAMYCIN
     Indication: CONJUNCTIVITIS
     Dosage: (3 TO 4 GTT )
     Route: 047
     Dates: start: 201803, end: 201803
  2. L?THYROXINE [Concomitant]
     Active Substance: LEVOTHYROXINE
     Indication: HYPOTHYROIDISM
     Route: 065
  3. PROSTA URGENIN [Concomitant]
     Indication: HYPOTHYROIDISM
     Route: 065
  4. DICLOABAK [Suspect]
     Active Substance: DICLOFENAC SODIUM
     Indication: CONJUNCTIVITIS
     Route: 047
  5. PREVALON LYCO [Concomitant]
     Indication: ARTHROPATHY
     Route: 065
  6. FLEXOFYTOL [Concomitant]
     Active Substance: CURCUMIN
     Indication: PROSTATIC DISORDER
     Route: 065

REACTIONS (2)
  - Deafness transitory [Recovered/Resolved]
  - Incorrect dose administered [Unknown]

NARRATIVE: CASE EVENT DATE: 201804
